FAERS Safety Report 5874148-9 (Version None)
Quarter: 2008Q3

REPORT INFORMATION
  Report Type: 
  Country: None (occurrence: None)
  Receive Date: 20080905
  Receipt Date: 20080905
  Transmission Date: 20090109
  Serious: Yes (Other)
  Sender: FDA-Public Use
  Company Number: None

PATIENT
  Sex: Female
  Weight: 6 kg

DRUGS (1)
  1. NALBUPHINE [Suspect]
     Indication: NORMAL LABOUR
     Dates: start: 19990304, end: 19990304

REACTIONS (9)
  - ATTENTION DEFICIT/HYPERACTIVITY DISORDER [None]
  - CHOLESTEATOMA [None]
  - DEAFNESS [None]
  - EAR INFECTION [None]
  - FAECES PALE [None]
  - GASTROOESOPHAGEAL REFLUX DISEASE [None]
  - KIDNEY INFECTION [None]
  - MATERNAL DRUGS AFFECTING FOETUS [None]
  - PAIN [None]
